FAERS Safety Report 6059323-5 (Version None)
Quarter: 2009Q1

REPORT INFORMATION
  Report Type: 
  Country: None (occurrence: None)
  Receive Date: 20090128
  Receipt Date: 20090128
  Transmission Date: 20090719
  Serious: Yes (Life-Threatening)
  Sender: FDA-Public Use
  Company Number: None

PATIENT
  Age: 37 Year
  Sex: Male
  Weight: 67.586 kg

DRUGS (2)
  1. PAXIL [Suspect]
     Indication: DEPRESSION
     Dosage: 40 MG TAB ONCE DAILY PO
     Route: 048
     Dates: start: 19971209, end: 20090127
  2. PAXIL [Suspect]
     Indication: SOCIAL PHOBIA
     Dosage: 40 MG TAB ONCE DAILY PO
     Route: 048
     Dates: start: 19971209, end: 20090127

REACTIONS (11)
  - ANGER [None]
  - ANOREXIA [None]
  - DECREASED APPETITE [None]
  - DRUG INEFFECTIVE [None]
  - DRUG WITHDRAWAL SYNDROME [None]
  - FEELING ABNORMAL [None]
  - MAJOR DEPRESSION [None]
  - NAUSEA [None]
  - RESTLESSNESS [None]
  - SUICIDAL IDEATION [None]
  - WEIGHT DECREASED [None]
